FAERS Safety Report 6225087-5 (Version None)
Quarter: 2009Q2

REPORT INFORMATION
  Report Type: 
  Country: None (occurrence: None)
  Receive Date: 20090612
  Receipt Date: 20090406
  Transmission Date: 20091009
  Serious: No
  Sender: FDA-Public Use
  Company Number: US-ABBOTT-09P-163-0566839-00

PATIENT
  Sex: Male
  Weight: 108.96 kg

DRUGS (2)
  1. HUMIRA [Suspect]
     Indication: CROHN'S DISEASE
     Dates: start: 20081101, end: 20081201
  2. HUMIRA [Suspect]
     Dates: start: 20081201

REACTIONS (2)
  - DRUG INEFFECTIVE [None]
  - INJECTION SITE HAEMATOMA [None]
